FAERS Safety Report 16654844 (Version 1)
Quarter: 2019Q3

REPORT INFORMATION
  Report Type: Spontaneous
  Country: US (occurrence: US)
  Receive Date: 20190801
  Receipt Date: 20190801
  Transmission Date: 20191004
  Serious: Yes (Other)
  Sender: FDA-Public Use
  Company Number: US-CIPLA LTD.-2019US05463

PATIENT

DRUGS (4)
  1. TEMOZOLOMIDE. [Suspect]
     Active Substance: TEMOZOLOMIDE
     Indication: GLIOBLASTOMA MULTIFORME
     Dosage: UNK
     Route: 065
  2. TEMOZOLOMIDE. [Suspect]
     Active Substance: TEMOZOLOMIDE
     Dosage: 75 MILLIGRAM/SQ. METER, PER DAY, 5 DAYS A WEEK
     Route: 065
  3. IRINOTECAN [Suspect]
     Active Substance: IRINOTECAN
     Indication: GLIOBLASTOMA MULTIFORME
     Dosage: 125 MG/M^2 EVERY WEEK FOR 4 WEEKS, REPEATED EVERY 6 WEEKS
     Route: 065
  4. BEVACIZUMAB. [Suspect]
     Active Substance: BEVACIZUMAB
     Indication: GLIOBLASTOMA MULTIFORME
     Dosage: 10 MILLIGRAM/KILOGRAM, EVERY 2 WEEKS
     Route: 065

REACTIONS (1)
  - Malignant neoplasm progression [Unknown]
